FAERS Safety Report 16323438 (Version 1)
Quarter: 2019Q2

REPORT INFORMATION
  Report Type: Spontaneous
  Country: US (occurrence: US)
  Receive Date: 20190517
  Receipt Date: 20190517
  Transmission Date: 20190711
  Serious: No
  Sender: FDA-Public Use
  Company Number: US-B.I. PHARMACEUTICALS,INC./RIDGEFIELD-2019-BI-021113

PATIENT
  Sex: Male

DRUGS (1)
  1. COMBIVENT [Suspect]
     Active Substance: ALBUTEROL SULFATE\IPRATROPIUM BROMIDE
     Indication: PRODUCT USED FOR UNKNOWN INDICATION
     Dosage: FORM STRENGTH: 20 MCG / 100 MCG; FORMULATION: INHALATION SPRAY;
     Route: 065

REACTIONS (8)
  - Emotional distress [Unknown]
  - Injury [Unknown]
  - Emotional disorder [Unknown]
  - Anxiety [Unknown]
  - Hypokinesia [Unknown]
  - Loss of personal independence in daily activities [Unknown]
  - Pain [Unknown]
  - Asthma [Unknown]
